FAERS Safety Report 5145823-9 (Version None)
Quarter: 2006Q4

REPORT INFORMATION
  Report Type: 
  Country: None (occurrence: None)
  Receive Date: 20061108
  Receipt Date: 20061030
  Transmission Date: 20070319
  Serious: Yes (Hospitalization)
  Sender: FDA-Public Use
  Company Number: SE-JNJFOC-20060405363

PATIENT
  Age: 39 Year
  Sex: Female

DRUGS (9)
  1. REMICADE [Suspect]
     Indication: RHEUMATOID ARTHRITIS
     Route: 042
  2. METHOTREXATE [Concomitant]
     Route: 065
  3. BETAPRED [Concomitant]
     Route: 065
  4. BRICANYL [Concomitant]
     Dosage: 0.5-2 MG DAILY
     Route: 055
  5. FOLACIN [Concomitant]
     Route: 065
  6. FOLLIMIN [Concomitant]
     Route: 065
  7. ORUDIS RETARD [Concomitant]
     Route: 065
  8. ACETAMINOPHEN [Concomitant]
     Route: 065
  9. CETIRIZINE HCL [Concomitant]
     Dosage: 10-20MG DAILY
     Route: 065

REACTIONS (2)
  - SARCOIDOSIS [None]
  - TRANSVERSE SINUS THROMBOSIS [None]
